FAERS Safety Report 17068789 (Version 5)
Quarter: 2020Q4

REPORT INFORMATION
  Report Type: Spontaneous
  Country: US (occurrence: US)
  Receive Date: 20191124
  Receipt Date: 20201219
  Transmission Date: 20210113
  Serious: No
  Sender: FDA-Public Use
  Company Number: US-BIOGEN-2019BI00787816

PATIENT
  Age: 38 Year
  Sex: Female

DRUGS (5)
  1. TECFIDERA [Suspect]
     Active Substance: DIMETHYL FUMARATE
     Route: 065
     Dates: start: 20190916
  2. TECFIDERA [Suspect]
     Active Substance: DIMETHYL FUMARATE
     Route: 065
     Dates: start: 20191019
  3. TECFIDERA [Suspect]
     Active Substance: DIMETHYL FUMARATE
     Route: 048
     Dates: start: 20191119
  4. TECFIDERA [Suspect]
     Active Substance: DIMETHYL FUMARATE
     Indication: MULTIPLE SCLEROSIS
     Route: 065
     Dates: start: 20190912, end: 20191018
  5. FIORICET [Concomitant]
     Active Substance: ACETAMINOPHEN\BUTALBITAL\CAFFEINE
     Indication: HEADACHE
     Route: 065

REACTIONS (16)
  - Diarrhoea [Recovered/Resolved]
  - Photophobia [Unknown]
  - Gastric disorder [Recovered/Resolved]
  - Fatigue [Unknown]
  - Flushing [Unknown]
  - Nausea [Unknown]
  - Pain in extremity [Unknown]
  - Migraine [Unknown]
  - Blood pressure decreased [Recovered/Resolved]
  - Blood alkaline phosphatase increased [Unknown]
  - Urticaria [Unknown]
  - Musculoskeletal stiffness [Unknown]
  - Abdominal pain upper [Unknown]
  - Abdominal discomfort [Unknown]
  - Blood glucose increased [Unknown]
  - Hyperacusis [Unknown]

NARRATIVE: CASE EVENT DATE: 20190912
